APPROVED DRUG PRODUCT: PHENTERMINE HYDROCHLORIDE
Active Ingredient: PHENTERMINE HYDROCHLORIDE
Strength: 37.5MG
Dosage Form/Route: CAPSULE;ORAL
Application: A040228 | Product #001
Applicant: ELITE LABORATORIES INC
Approved: Jun 19, 1997 | RLD: No | RS: No | Type: DISCN